FAERS Safety Report 9562123 (Version 2)
Quarter: 2013Q4

REPORT INFORMATION
  Report Type: Spontaneous
  Country: DE (occurrence: DE)
  Receive Date: 20130927
  Receipt Date: 20131018
  Transmission Date: 20140711
  Serious: Yes (Other)
  Sender: FDA-Public Use
  Company Number: DE-JNJFOC-20130915467

PATIENT
  Sex: Female

DRUGS (4)
  1. XARELTO [Suspect]
     Indication: EMBOLISM VENOUS
     Route: 048
  2. XARELTO [Suspect]
     Indication: DEEP VEIN THROMBOSIS
     Route: 048
  3. XARELTO [Suspect]
     Indication: THROMBOSIS PROPHYLAXIS
     Route: 048
  4. XARELTO [Suspect]
     Indication: THROMBOSIS
     Route: 048

REACTIONS (1)
  - Trigeminal neuralgia [Recovering/Resolving]
